FAERS Safety Report 9839336 (Version 2)
Quarter: 2014Q1

REPORT INFORMATION
  Report Type: Spontaneous
  Country: JP (occurrence: JP)
  Receive Date: 20140123
  Receipt Date: 20140123
  Transmission Date: 20141002
  Serious: Yes (Other)
  Sender: FDA-Public Use
  Company Number: PHHY2012JP115905

PATIENT
  Age: 57 Year
  Sex: Female
  Weight: 50 kg

DRUGS (10)
  1. EXJADE [Suspect]
     Indication: IRON OVERLOAD
     Dosage: 500 MG, UNK
     Route: 048
     Dates: start: 20110227, end: 20110311
  2. NEORAL [Concomitant]
     Indication: GRAFT VERSUS HOST DISEASE
     Dosage: UNK UKN, UNK
     Route: 048
     Dates: end: 201012
  3. NEORAL [Concomitant]
     Dosage: UNK UKN, UNK
     Route: 048
     Dates: start: 201104
  4. CRESTOR [Concomitant]
     Indication: PROPHYLAXIS
     Dosage: 5 MG, UNK
     Route: 048
     Dates: start: 20101209, end: 20110303
  5. GLYCYRON [Concomitant]
     Dosage: 6 DF, UNK
     Route: 048
     Dates: start: 20110303, end: 20110326
  6. ALLELOCK [Concomitant]
     Indication: PRURITUS
     Dosage: 2 DF, UNK
     Route: 048
     Dates: start: 20110217, end: 20110326
  7. URSO [Concomitant]
     Indication: GRAFT VERSUS HOST DISEASE IN LIVER
     Dosage: 600 MG, UNK
     Route: 048
     Dates: start: 20100502, end: 20110328
  8. PARIET [Concomitant]
     Indication: GASTRITIS
     Dosage: 10 MG, UNK
     Route: 048
     Dates: start: 20100407, end: 20110326
  9. BIO-THREE [Concomitant]
     Indication: GASTRITIS
     Dosage: 3 DF, UNK
     Route: 048
     Dates: start: 20100407, end: 20110326
  10. BEZAFIBRATE [Concomitant]
     Dosage: UNK UKN, UNK

REACTIONS (4)
  - Hepatic function abnormal [Recovered/Resolved]
  - Liver disorder [Recovering/Resolving]
  - Gallbladder injury [Unknown]
  - Lymphocytic infiltration [Unknown]
